FAERS Safety Report 9760561 (Version 3)
Quarter: 2013Q4

REPORT INFORMATION
  Report Type: Other
  Country: CA (occurrence: CA)
  Receive Date: 20131216
  Receipt Date: 20131224
  Transmission Date: 20140711
  Serious: Yes (Hospitalization)
  Sender: FDA-Public Use
  Company Number: CA-ACORDA-ACO_100787_2013

PATIENT
  Age: 59 Year
  Sex: Female

DRUGS (2)
  1. FAMPYRA [Suspect]
     Indication: GAIT DISTURBANCE
     Dosage: 10 MG, Q 12 HRS
     Route: 048
  2. COUMADIN [Concomitant]
     Indication: PRODUCT USED FOR UNKNOWN INDICATION

REACTIONS (3)
  - Cerebral venous thrombosis [Unknown]
  - Fall [Unknown]
  - Contusion [Not Recovered/Not Resolved]
